FAERS Safety Report 21890325 (Version 2)
Quarter: 2023Q4

REPORT INFORMATION
  Report Type: Spontaneous
  Country: US (occurrence: US)
  Receive Date: 20230120
  Receipt Date: 20231121
  Transmission Date: 20240110
  Serious: Yes (Other)
  Sender: FDA-Public Use
  Company Number: US-PFIZER INC-2020395160

PATIENT
  Age: 73 Year
  Sex: Female

DRUGS (1)
  1. IBRANCE [Suspect]
     Active Substance: PALBOCICLIB
     Dosage: 125 MG, CYCLIC (TAKE 125 MG DAILY DAYS 1-21 OF 28 DAY CYCLE)
     Route: 048

REACTIONS (4)
  - Cataract [Unknown]
  - Blindness [Unknown]
  - Product dose omission issue [Unknown]
  - Product distribution issue [Unknown]
